FAERS Safety Report 13424771 (Version 2)
Quarter: 2017Q3

REPORT INFORMATION
  Report Type: Report from Study
  Country: US (occurrence: US)
  Receive Date: 20170410
  Receipt Date: 20170710
  Transmission Date: 20171127
  Serious: No
  Sender: FDA-Public Use
  Company Number: US-RETROPHIN, INC.-2017RTN00007

PATIENT
  Sex: Female
  Weight: 11.8 kg

DRUGS (4)
  1. CUVPOSA [Concomitant]
     Active Substance: GLYCOPYRROLATE
     Dosage: 1 ML, 1X/DAY AT BEDTIME
     Dates: start: 20161014
  2. CHOLBAM [Suspect]
     Active Substance: CHOLIC ACID
     Indication: CEREBROHEPATORENAL SYNDROME
     Dosage: 150 MG, 1X/DAY
     Dates: start: 20170215
  3. KEPPRA [Concomitant]
     Active Substance: LEVETIRACETAM
     Dosage: UNK
  4. LACTULOSE. [Concomitant]
     Active Substance: LACTULOSE
     Dosage: 10 ML, 1X/DAY
     Dates: start: 20161107

REACTIONS (2)
  - Dyspnoea [Unknown]
  - Tonsillar hypertrophy [Unknown]
